FAERS Safety Report 17607991 (Version 1)
Quarter: 2020Q1

REPORT INFORMATION
  Report Type: Spontaneous
  Country: US (occurrence: US)
  Receive Date: 20200331
  Receipt Date: 20200331
  Transmission Date: 20200409
  Serious: No
  Sender: FDA-Public Use
  Company Number: US-ASTRAZENECA-2020SE41303

PATIENT
  Age: 66 Year
  Sex: Female
  Weight: 75.8 kg

DRUGS (5)
  1. PAXIL [Concomitant]
     Active Substance: PAROXETINE HYDROCHLORIDE
     Indication: DEPRESSION
     Dates: start: 2017
  2. HYDROCODONE-ACETAMINOPHEN [Concomitant]
     Active Substance: ACETAMINOPHEN\HYDROCODONE
     Indication: PAIN
     Dosage: 10MG-325 MG, AS NEEDED
     Dates: start: 20191230
  3. BYDUREON BCISE [Suspect]
     Active Substance: EXENATIDE
     Indication: TYPE 2 DIABETES MELLITUS
     Route: 065
     Dates: start: 202001
  4. INVOKANA [Concomitant]
     Active Substance: CANAGLIFLOZIN
     Indication: DIABETES MELLITUS
     Dates: start: 2015
  5. LAMOTRIGINE. [Concomitant]
     Active Substance: LAMOTRIGINE
     Indication: DEPRESSION

REACTIONS (2)
  - Injection site bruising [Unknown]
  - Injection site pain [Unknown]

NARRATIVE: CASE EVENT DATE: 2020
